FAERS Safety Report 24972512 (Version 1)
Quarter: 2025Q1

REPORT INFORMATION
  Report Type: Report from Study
  Country: US (occurrence: None)
  Receive Date: 20250215
  Receipt Date: 20250215
  Transmission Date: 20250408
  Serious: Yes (Hospitalization, Other)
  Sender: ALEXION PHARMACEUTICALS
  Company Number: US-AstraZeneca-2014SE27361

PATIENT
  Age: 85 Year
  Weight: 54.431 kg

DRUGS (3)
  1. NEXIUM [Suspect]
     Active Substance: ESOMEPRAZOLE MAGNESIUM
     Indication: Gastric ulcer
     Dosage: 40 MILLIGRAM, BID
  2. NEXIUM [Suspect]
     Active Substance: ESOMEPRAZOLE MAGNESIUM
     Indication: Gastrooesophageal reflux disease
     Dosage: 40 MILLIGRAM, QD
  3. NEXIUM [Suspect]
     Active Substance: ESOMEPRAZOLE MAGNESIUM
     Dosage: 40 MILLIGRAM, BID

REACTIONS (14)
  - Fall [Recovered/Resolved]
  - Haemoglobin decreased [Unknown]
  - Rheumatoid arthritis [Unknown]
  - Gastric ulcer [Unknown]
  - Hypoacusis [Unknown]
  - Hypertension [Unknown]
  - Diabetes mellitus [Unknown]
  - Neuropathy peripheral [Unknown]
  - Gastrooesophageal reflux disease [Unknown]
  - Body height decreased [Unknown]
  - Intentional product misuse [Unknown]
  - Off label use [Unknown]
  - Intentional product use issue [Unknown]
  - Product dose omission issue [Unknown]
